FAERS Safety Report 23333831 (Version 2)
Quarter: 2024Q1

REPORT INFORMATION
  Report Type: Report from Study
  Country: DE (occurrence: DE)
  Receive Date: 20231223
  Receipt Date: 20240127
  Transmission Date: 20240409
  Serious: Yes (Death, Hospitalization, Other)
  Sender: FDA-Public Use
  Company Number: DE-ABBVIE-5554791

PATIENT
  Sex: Male
  Weight: 96 kg

DRUGS (39)
  1. CARBIDOPA\LEVODOPA [Suspect]
     Active Substance: CARBIDOPA\LEVODOPA
     Indication: Parkinson^s disease
     Route: 050
     Dates: start: 20231019
  2. CARBIDOPA\LEVODOPA [Suspect]
     Active Substance: CARBIDOPA\LEVODOPA
  3. POLYETHYLENE GLYCOLS [Concomitant]
     Active Substance: POLYETHYLENE GLYCOLS
     Indication: Product used for unknown indication
  4. METAMIZOLE [Concomitant]
     Active Substance: METAMIZOLE
     Indication: Product used for unknown indication
     Dates: start: 20230925
  5. ELIQUIS [Concomitant]
     Active Substance: APIXABAN
     Indication: Atrial fibrillation
     Dates: end: 20231221
  6. DABIGATRAN [Concomitant]
     Active Substance: DABIGATRAN
     Indication: Product used for unknown indication
  7. MOVICOL [Concomitant]
     Active Substance: POLYETHYLENE GLYCOL 3350\POTASSIUM CHLORIDE\SODIUM BICARBONATE\SODIUM CHLORIDE
     Indication: Product used for unknown indication
     Dates: start: 20230925
  8. CALCIUM GLUCONATE [Concomitant]
     Active Substance: CALCIUM GLUCONATE
     Indication: Metabolic acidosis
     Dates: start: 2023
  9. VITAMIN B12 [Concomitant]
     Active Substance: CYANOCOBALAMIN
     Indication: Vitamin B12 deficiency
  10. HYDROMORPHONE [Concomitant]
     Active Substance: HYDROMORPHONE
     Indication: Product used for unknown indication
     Dates: start: 20230925
  11. PANTOPRAZOLE [Concomitant]
     Active Substance: PANTOPRAZOLE
     Indication: Product used for unknown indication
     Dates: start: 20230925
  12. PANTOPRAZOLE [Concomitant]
     Active Substance: PANTOPRAZOLE
     Indication: Product used for unknown indication
  13. ALBUTEROL [Concomitant]
     Active Substance: ALBUTEROL
     Indication: Metabolic acidosis
     Dosage: ATROVENT
     Dates: start: 2023
  14. TORSEMIDE [Concomitant]
     Active Substance: TORSEMIDE
     Indication: Product used for unknown indication
  15. TORSEMIDE [Concomitant]
     Active Substance: TORSEMIDE
     Indication: Product used for unknown indication
     Dates: start: 20230925
  16. BENSERAZIDE\LEVODOPA [Concomitant]
     Active Substance: BENSERAZIDE\LEVODOPA
     Indication: Parkinson^s disease
     Dosage: 100/25 MG
  17. TORSEMIDE [Concomitant]
     Active Substance: TORSEMIDE
     Indication: Hypertension
     Dosage: 10?FREQUENCY TEXT: HALF A DOSE A DAY
     Dates: end: 20231221
  18. AMANTADINE [Concomitant]
     Active Substance: AMANTADINE
     Indication: Parkinson^s disease
  19. ATORVASTATIN [Concomitant]
     Active Substance: ATORVASTATIN
     Indication: Product used for unknown indication
     Dates: start: 20230925
  20. XADAGO [Concomitant]
     Active Substance: SAFINAMIDE MESYLATE
     Indication: Product used for unknown indication
     Dates: start: 20230925
  21. VALSARTAN [Concomitant]
     Active Substance: VALSARTAN
     Indication: Product used for unknown indication
  22. QUETIAPINE [Concomitant]
     Active Substance: QUETIAPINE
     Indication: Restlessness
     Dates: end: 2023
  23. QUETIAPINE [Concomitant]
     Active Substance: QUETIAPINE
     Indication: Restlessness
     Dates: start: 2023, end: 20231221
  24. METAMIZOLE [Concomitant]
     Active Substance: METAMIZOLE
     Indication: Product used for unknown indication
     Dosage: TIME INTERVAL: 0.125 DAYS
  25. LEVOTHYROXINE SODIUM [Concomitant]
     Active Substance: LEVOTHYROXINE SODIUM
     Indication: Hyperthyroidism
     Dosage: 2023?FREQUENCY TEXT: HALF A DOSE A DAY
     Dates: start: 20230925
  26. LEVOTHYROXINE SODIUM [Concomitant]
     Active Substance: LEVOTHYROXINE SODIUM
     Indication: Hyperthyroidism
     Dosage: FREQUENCY TEXT: HALF A DOSE A DAY
     Dates: start: 2023, end: 20231221
  27. NEUPRO [Concomitant]
     Active Substance: ROTIGOTINE
     Indication: Parkinson^s disease
     Dates: start: 2023
  28. INSULIN NOS [Concomitant]
     Active Substance: INSULIN NOS
     Indication: Metabolic acidosis
     Dates: start: 2023
  29. NEXIUM [Concomitant]
     Active Substance: ESOMEPRAZOLE MAGNESIUM
     Indication: Gastritis
     Dates: end: 20231221
  30. FOLIC ACID [Concomitant]
     Active Substance: FOLIC ACID
     Indication: Folate deficiency
  31. CYANOCOBALAMIN [Concomitant]
     Active Substance: CYANOCOBALAMIN
     Indication: Product used for unknown indication
     Dosage: 1000 MCG/ML
  32. CARBIDOPA\ENTACAPONE\LEVODOPA [Concomitant]
     Active Substance: CARBIDOPA\ENTACAPONE\LEVODOPA
     Indication: Product used for unknown indication
     Dosage: 125/31.25/200 MG
     Dates: start: 20230925
  33. PRADAXA [Concomitant]
     Active Substance: DABIGATRAN ETEXILATE MESYLATE
     Indication: Product used for unknown indication
     Dates: start: 20230925
  34. LEVOTHYROXINE [Concomitant]
     Active Substance: LEVOTHYROXINE\LEVOTHYROXINE SODIUM
     Indication: Product used for unknown indication
  35. FUROSEMIDE [Concomitant]
     Active Substance: FUROSEMIDE
     Indication: Metabolic acidosis
     Dates: start: 2023
  36. PIPERACILLIN SODIUM\TAZOBACTAM SODIUM [Concomitant]
     Active Substance: PIPERACILLIN SODIUM\TAZOBACTAM SODIUM
     Indication: Pneumonia aspiration
     Dates: start: 2023
  37. IRON [Concomitant]
     Active Substance: IRON
     Indication: Iron deficiency
     Dates: start: 2023
  38. ALLOPURINOL [Concomitant]
     Active Substance: ALLOPURINOL
     Indication: Product used for unknown indication
     Dates: start: 20230925
  39. METFORMIN [Concomitant]
     Active Substance: METFORMIN HYDROCHLORIDE
     Indication: Product used for unknown indication
     Dosage: TIME INTERVAL: 0.33333333 DAYS
     Dates: start: 20230925

REACTIONS (37)
  - Death [Fatal]
  - Reduced facial expression [Unknown]
  - Staphylococcal infection [Unknown]
  - Pallor [Unknown]
  - Disorientation [Unknown]
  - Vitamin B12 deficiency [Unknown]
  - General physical health deterioration [Unknown]
  - Cognitive disorder [Unknown]
  - Candida infection [Unknown]
  - Dysdiadochokinesis [Unknown]
  - Hypokinesia [Unknown]
  - Adjustment disorder with depressed mood [Unknown]
  - Iron deficiency [Unknown]
  - Pneumonia aspiration [Unknown]
  - Stoma site reaction [Unknown]
  - Oral candidiasis [Unknown]
  - Hypothyroidism [Unknown]
  - Chronic gastritis [Unknown]
  - Escherichia infection [Unknown]
  - Asymptomatic bacteriuria [Unknown]
  - Parkinsonian crisis [Unknown]
  - Stoma site erythema [Unknown]
  - Erythema [Unknown]
  - Skin discolouration [Unknown]
  - Hepatic vein occlusion [Unknown]
  - Gastrooesophageal reflux disease [Unknown]
  - Dysphagia [Unknown]
  - Dysarthria [Unknown]
  - Nervous system disorder [Unknown]
  - Gait disturbance [Unknown]
  - Mobility decreased [Unknown]
  - Motor dysfunction [Unknown]
  - Tremor [Unknown]
  - Muscle rigidity [Unknown]
  - Bradykinesia [Unknown]
  - Delirium [Unknown]
  - Salivary hypersecretion [Unknown]

NARRATIVE: CASE EVENT DATE: 20230101
